FAERS Safety Report 7372179-3 (Version None)
Quarter: 2011Q1

REPORT INFORMATION
  Report Type: 
  Country: None (occurrence: None)
  Receive Date: 20110311
  Receipt Date: 20110308
  Transmission Date: 20110831
  Serious: Yes (Other)
  Sender: FDA-Public Use
  Company Number: A0917120A

PATIENT
  Age: 54 Year
  Sex: Female

DRUGS (1)
  1. UREA PEROXIDE [Suspect]
     Dosage: AURAL

REACTIONS (6)
  - EAR DISCOMFORT [None]
  - TINNITUS [None]
  - EAR PAIN [None]
  - AURICULAR SWELLING [None]
  - EAR HAEMORRHAGE [None]
  - DRUG ADMINISTRATION ERROR [None]
